FAERS Safety Report 23277183 (Version 1)
Quarter: 2023Q4

REPORT INFORMATION
  Report Type: Spontaneous
  Country: US (occurrence: None)
  Receive Date: 20231207
  Receipt Date: 20231207
  Transmission Date: 20240110
  Serious: Yes (Other)
  Sender: FDA-Public Use
  Company Number: None

PATIENT
  Age: 52 Year
  Sex: Female

DRUGS (1)
  1. FERRLECIT [Suspect]
     Active Substance: SODIUM FERRIC GLUCONATE COMPLEX
     Indication: Iron deficiency anaemia
     Dosage: OTHER FREQUENCY : ONCE;?
     Route: 041
     Dates: start: 20231016, end: 20231016

REACTIONS (8)
  - Back pain [None]
  - Abdominal pain upper [None]
  - Peripheral swelling [None]
  - Joint swelling [None]
  - Drug ineffective [None]
  - Hypotension [None]
  - Bradycardia [None]
  - Swelling face [None]

NARRATIVE: CASE EVENT DATE: 20231016
